FAERS Safety Report 18005548 (Version 1)
Quarter: 2020Q3

REPORT INFORMATION
  Report Type: Spontaneous
  Country: US (occurrence: US)
  Receive Date: 20200709
  Receipt Date: 20200709
  Transmission Date: 20201103
  Serious: No
  Sender: FDA-Public Use
  Company Number: None

PATIENT
  Age: 41 Year
  Sex: Female
  Weight: 42.3 kg

DRUGS (9)
  1. MYCOPHENOLATE [Concomitant]
     Active Substance: MYCOPHENOLIC ACID
  2. DAPSONE 100MG TABLETS [Concomitant]
     Active Substance: DAPSONE
  3. ALINIA [Suspect]
     Active Substance: NITAZOXANIDE
     Indication: CRYPTOSPORIDIOSIS INFECTION
     Dosage: ?          QUANTITY:28 28;?
     Route: 048
  4. IRON TABLET 27MG [Concomitant]
  5. FLUCONAZOLE 100MG [Concomitant]
     Active Substance: FLUCONAZOLE
  6. BABY ASPIRIN 81MG [Concomitant]
  7. PREDNISONE. [Concomitant]
     Active Substance: PREDNISONE
  8. AZYTHROMYCIN [Concomitant]
     Active Substance: AZITHROMYCIN ANHYDROUS
  9. TACROLIMUS 3MG [Concomitant]

REACTIONS (6)
  - Diarrhoea [None]
  - White blood cell count decreased [None]
  - Dyspepsia [None]
  - Decreased appetite [None]
  - Gastrooesophageal reflux disease [None]
  - Headache [None]

NARRATIVE: CASE EVENT DATE: 20200704
